FAERS Safety Report 9691598 (Version 2)
Quarter: 2014Q2

REPORT INFORMATION
  Report Type: Spontaneous
  Country: US (occurrence: US)
  Receive Date: 20131115
  Receipt Date: 20140530
  Transmission Date: 20141212
  Serious: No
  Sender: FDA-Public Use
  Company Number: US-009507513-1311USA006570

PATIENT
  Age: 65 Year
  Sex: Female
  Weight: 61.22 kg

DRUGS (3)
  1. MIRALAX [Suspect]
     Indication: CONSTIPATION
     Dosage: 17 G, QD
     Route: 048
     Dates: start: 20131029, end: 20131102
  2. MIRALAX [Suspect]
     Indication: FAECALOMA
  3. ESTRADIOL [Concomitant]
     Indication: HYSTERECTOMY
     Dosage: UNK, UNKNOWN

REACTIONS (4)
  - Dizziness [Recovering/Resolving]
  - Pain in extremity [Recovering/Resolving]
  - Muscular weakness [Recovering/Resolving]
  - Hypotonia [Recovering/Resolving]
